FAERS Safety Report 4324605-1 (Version None)
Quarter: 2004Q1

REPORT INFORMATION
  Report Type: 
  Country: None (occurrence: None)
  Receive Date: 20040323
  Receipt Date: 20040308
  Transmission Date: 20041129
  Serious: Yes (Other)
  Sender: FDA-Public Use
  Company Number: 2004-BP-01434BP

PATIENT
  Age: 69 Year
  Sex: Female

DRUGS (7)
  1. MICARDIS [Suspect]
     Indication: CARDIOVASCULAR DISORDER
     Dosage: NR (NR) PO
     Route: 048
     Dates: start: 20030514
  2. MICARDIS [Suspect]
     Indication: MYOCARDIAL INFARCTION
     Dosage: NR (NR) PO
     Route: 048
     Dates: start: 20030514
  3. RAMIPRIL [Suspect]
     Indication: CARDIOVASCULAR DISORDER
     Dosage: NR (NR) PO
     Route: 048
     Dates: start: 20030514
  4. RAMIPRIL [Suspect]
     Indication: MYOCARDIAL INFARCTION
     Dosage: NR (NR) PO
     Route: 048
     Dates: start: 20030514
  5. METOPROLOL (METOPROLOL) [Concomitant]
  6. CLOPIDOGREL BISULFATE [Concomitant]
  7. PRAVASTATIN [Concomitant]

REACTIONS (2)
  - BLOOD CREATININE DECREASED [None]
  - HYPERKALAEMIA [None]
